FAERS Safety Report 20211631 (Version 1)
Quarter: 2021Q4

REPORT INFORMATION
  Report Type: Report from Study
  Country: US (occurrence: US)
  Receive Date: 20211221
  Receipt Date: 20211221
  Transmission Date: 20220303
  Serious: Yes (Other)
  Sender: FDA-Public Use
  Company Number: US-BAYER-2021A269322

PATIENT

DRUGS (2)
  1. ASPIRIN [Suspect]
     Active Substance: ASPIRIN
     Dosage: 81 MG
  2. ASPIRIN [Suspect]
     Active Substance: ASPIRIN
     Dosage: 325 UNK

REACTIONS (2)
  - Angioedema [None]
  - Drug hypersensitivity [None]
